FAERS Safety Report 14774732 (Version 1)
Quarter: 2018Q2

REPORT INFORMATION
  Report Type: Spontaneous
  Country: US (occurrence: US)
  Receive Date: 20180418
  Receipt Date: 20180418
  Transmission Date: 20180711
  Serious: No
  Sender: FDA-Public Use
  Company Number: US-PFIZER INC-2018158711

PATIENT
  Age: 58 Year
  Sex: Female
  Weight: 113.38 kg

DRUGS (6)
  1. DOCETAXEL. [Suspect]
     Active Substance: DOCETAXEL
     Indication: BREAST CANCER
     Dosage: 220 MG, CYCLIC (4 CYCLES EVERY THREE WEEKS, IN COMBINATION OR SEQUENCE WITH ACX4 FOLLOWED BY TAXOTER
     Dates: start: 20110902, end: 20111104
  2. ATENOLOL. [Concomitant]
     Active Substance: ATENOLOL
     Dosage: UNK
  3. ADRIAMYCIN [Concomitant]
     Active Substance: DOXORUBICIN HYDROCHLORIDE
     Dosage: UNK
  4. LOSARTAN. [Concomitant]
     Active Substance: LOSARTAN
     Dosage: UNK
  5. CYTOXAN [Concomitant]
     Active Substance: CYCLOPHOSPHAMIDE
     Dosage: UNK
  6. TAXOTERE [Suspect]
     Active Substance: DOCETAXEL
     Indication: BREAST CANCER
     Dosage: 220 MG, CYCLIC (4 CYCLES EVERY THREE WEEKS, IN COMBINATION OR SEQUENCE WITH ACX4 FOLLOWED BY TAXOTER
     Dates: start: 20110902, end: 20111104

REACTIONS (5)
  - Madarosis [Recovering/Resolving]
  - Hair texture abnormal [Recovering/Resolving]
  - Hair colour changes [Recovering/Resolving]
  - Alopecia [Recovering/Resolving]
  - Hair disorder [Recovering/Resolving]
